FAERS Safety Report 21748128 (Version 1)
Quarter: 2022Q4

REPORT INFORMATION
  Report Type: Spontaneous
  Country: ES (occurrence: ES)
  Receive Date: 20221219
  Receipt Date: 20221219
  Transmission Date: 20230112
  Serious: Yes (Other)
  Sender: FDA-Public Use
  Company Number: None

PATIENT
  Age: 79 Year
  Sex: Female

DRUGS (8)
  1. FLUCONAZOLE [Suspect]
     Active Substance: FLUCONAZOLE
     Indication: Diverticulitis
     Dosage: 400 MG
     Route: 042
     Dates: start: 20220514, end: 20220524
  2. SERTRALINE HYDROCHLORIDE [Suspect]
     Active Substance: SERTRALINE HYDROCHLORIDE
     Indication: Depression
     Dosage: 100 MG, DAILY
     Route: 048
     Dates: start: 20220429
  3. EDOXABAN TOSYLATE [Suspect]
     Active Substance: EDOXABAN TOSYLATE
     Indication: Atrial fibrillation
     Dosage: 30 MG, DAILY
     Route: 048
     Dates: start: 20200101, end: 20220520
  4. METRONIDAZOL BRAUN [Concomitant]
     Indication: Appendicitis
     Dosage: 500 MG/8H
     Route: 042
     Dates: start: 20220509, end: 20220515
  5. DAPAGLIFLOZIN [Concomitant]
     Active Substance: DAPAGLIFLOZIN
     Indication: Type 2 diabetes mellitus
     Dosage: 20 MG, DAILY
     Route: 048
  6. FUROSEMIDE [Concomitant]
     Active Substance: FUROSEMIDE
     Indication: Cardiac failure
     Dosage: 40 MG, DAILY
     Route: 048
  7. ACETAMINOPHEN [Concomitant]
     Active Substance: ACETAMINOPHEN
     Indication: Pain
     Dosage: 1 G IF REQUIRED
     Route: 042
     Dates: start: 20220506, end: 20220526
  8. AMOXICILINA /ACIDO CLAVULANICO [Concomitant]
     Indication: Appendicitis
     Dosage: 1 G/8H
     Route: 042
     Dates: start: 20220509, end: 20220515

REACTIONS (1)
  - Subdural haematoma [Recovered/Resolved]

NARRATIVE: CASE EVENT DATE: 20220520
